FAERS Safety Report 12278928 (Version 2)
Quarter: 2016Q2

REPORT INFORMATION
  Report Type: Report from Study
  Country: JP (occurrence: JP)
  Receive Date: 20160418
  Receipt Date: 20160418
  Transmission Date: 20160815
  Serious: Yes (Life-Threatening, Hospitalization)
  Sender: FDA-Public Use
  Company Number: JP-WATSON-2016-07502

PATIENT
  Age: 14 Year
  Sex: Female

DRUGS (112)
  1. FUROSEMIDE (UNKNOWN) [Suspect]
     Active Substance: FUROSEMIDE
     Dosage: UNKNOWN
     Route: 048
     Dates: start: 20130817, end: 20130824
  2. FUROSEMIDE (UNKNOWN) [Suspect]
     Active Substance: FUROSEMIDE
     Dosage: UNKNOWN
     Route: 048
     Dates: start: 20130714, end: 20130729
  3. CHLORPHENIRAMINE MALEATE (WATSON LABORATORIES) [Suspect]
     Active Substance: CHLORPHENIRAMINE MALEATE
     Dosage: UNKNOWN
     Route: 065
     Dates: start: 20130722, end: 20130727
  4. OXYCODONE (UNKNOWN) [Suspect]
     Active Substance: OXYCODONE
     Indication: NEUROPATHY PERIPHERAL
     Dosage: UNKNOWN
     Route: 065
     Dates: start: 20130714, end: 20130729
  5. HEPARIN SODIUM (UNKNOWN) [Suspect]
     Active Substance: HEPARIN SODIUM
     Indication: PROPHYLAXIS
     Dosage: 5000 IU, DAILY
     Route: 065
     Dates: start: 20130730, end: 20130807
  6. PROBENECID (WATSON LABORATORIES) [Suspect]
     Active Substance: PROBENECID
     Dosage: 750 MG, BID
     Route: 048
     Dates: start: 20130820, end: 20130824
  7. METHYLPREDNISOLONE (WATSON LABORATORIES) [Suspect]
     Active Substance: METHYLPREDNISOLONE
     Dosage: 45 MG, BID
     Route: 051
     Dates: start: 20130729, end: 20130729
  8. LENOGRASTIM [Suspect]
     Active Substance: LENOGRASTIM
     Dosage: 125 MCG, DAILY
     Route: 051
     Dates: start: 20130804, end: 20130804
  9. ANTITHROMBIN III HUMAN [Suspect]
     Active Substance: ANTITHROMBIN III HUMAN
     Dosage: 1500 IU, DAILY
     Route: 065
     Dates: start: 20130715, end: 20130715
  10. CARPERITIDE [Suspect]
     Active Substance: CARPERITIDE
     Dosage: UNKNOWN
     Route: 051
     Dates: start: 20130730, end: 20130802
  11. IMMUNOGLOBULIN                     /00025201/ [Suspect]
     Active Substance: HUMAN IMMUNOGLOBULIN G
     Dosage: 5 G, SINGLE
     Route: 051
     Dates: start: 20130802, end: 20130802
  12. LACTOBACILLUS NOS [Suspect]
     Active Substance: LACTOBACILLUS ACIDOPHILUS
     Dosage: 1 G, TID
     Route: 048
     Dates: start: 20130807, end: 20130810
  13. MIDAZOLAM [Suspect]
     Active Substance: MIDAZOLAM\MIDAZOLAM HYDROCHLORIDE
     Dosage: UNKNOWN
     Route: 051
     Dates: start: 20130730, end: 20130807
  14. FUROSEMIDE (UNKNOWN) [Suspect]
     Active Substance: FUROSEMIDE
     Dosage: 20 MG, BID
     Route: 048
     Dates: start: 20130821, end: 20130825
  15. FUROSEMIDE (UNKNOWN) [Suspect]
     Active Substance: FUROSEMIDE
     Dosage: UNKNOWN
     Route: 048
     Dates: start: 20130806, end: 20130806
  16. ACYCLOVIR (UNKNOWN) [Suspect]
     Active Substance: ACYCLOVIR
     Indication: PROPHYLAXIS
     Dosage: 1000 MG, DAILY
     Route: 048
     Dates: start: 20130718, end: 20130926
  17. LANSOPRAZOLE (UNKNOWN) [Suspect]
     Active Substance: LANSOPRAZOLE
     Indication: GASTROINTESTINAL DISORDER
     Dosage: 30 MG, DAILY
     Route: 048
     Dates: start: 20130714, end: 20130729
  18. METHYLPREDNISOLONE (WATSON LABORATORIES) [Suspect]
     Active Substance: METHYLPREDNISOLONE
     Dosage: 45 MG, BID
     Route: 051
     Dates: start: 20130731, end: 20130731
  19. ADONA                              /00056903/ [Suspect]
     Active Substance: CARBAZOCHROME SODIUM SULFONATE
     Indication: ORAL DISORDER
     Dosage: 100 MG, DAILY
     Route: 048
     Dates: start: 20130720, end: 20130729
  20. FLURBIPROFEN AXETIL [Suspect]
     Active Substance: FLURBIPROFEN AXETIL
     Dosage: UNKNOWN
     Route: 051
     Dates: start: 20130811, end: 20130811
  21. SUGAMMADEX SODIUM [Suspect]
     Active Substance: SUGAMMADEX SODIUM
     Indication: ACUTE LYMPHOCYTIC LEUKAEMIA
     Dosage: UNKNOWN
     Route: 051
     Dates: start: 20130801, end: 20130801
  22. ANTITHROMBIN III HUMAN [Suspect]
     Active Substance: ANTITHROMBIN III HUMAN
     Indication: ABNORMAL CLOTTING FACTOR
     Dosage: 1500 IU, DAILY
     Route: 065
     Dates: start: 20130811, end: 20130812
  23. MENATETRENONE [Suspect]
     Active Substance: MENATETRENONE
     Indication: ABNORMAL CLOTTING FACTOR
     Dosage: 10 MG, DAILY
     Route: 065
     Dates: start: 20130728, end: 20130728
  24. IMMUNOGLOBULIN                     /00025201/ [Suspect]
     Active Substance: HUMAN IMMUNOGLOBULIN G
     Indication: PROPHYLAXIS
     Dosage: 5 G, SINGLE
     Route: 051
     Dates: start: 20130815, end: 20130815
  25. IMMUNOGLOBULIN                     /00025201/ [Suspect]
     Active Substance: HUMAN IMMUNOGLOBULIN G
     Dosage: 5 G, DAILY
     Route: 051
     Dates: start: 20130720, end: 20130721
  26. FUROSEMIDE (UNKNOWN) [Suspect]
     Active Substance: FUROSEMIDE
     Indication: RENAL IMPAIRMENT
     Dosage: UNKNOWN
     Route: 048
     Dates: start: 20130826, end: 20130910
  27. ACETAMINOPHEN (UNKNOWN) [Suspect]
     Active Substance: ACETAMINOPHEN
     Indication: ACUTE LYMPHOCYTIC LEUKAEMIA
     Dosage: UNKNOWN
     Route: 048
     Dates: start: 20130808, end: 20130808
  28. CHLORPHENIRAMINE MALEATE (WATSON LABORATORIES) [Suspect]
     Active Substance: CHLORPHENIRAMINE MALEATE
     Dosage: UNKNOWN
     Route: 065
     Dates: start: 20130825, end: 20130825
  29. CHLORPHENIRAMINE MALEATE (WATSON LABORATORIES) [Suspect]
     Active Substance: CHLORPHENIRAMINE MALEATE
     Dosage: UNKNOWN
     Route: 065
     Dates: start: 20130729, end: 20130729
  30. PENTAMIDINE ISETHIONATE (WATSON LABORATORIES) [Suspect]
     Active Substance: PENTAMIDINE ISETHIONATE
     Indication: PROPHYLAXIS
     Dosage: 300 MG, SINGLE
     Route: 051
     Dates: start: 20130814, end: 20130814
  31. SPIRONOLACTONE (UNKNOWN) [Suspect]
     Active Substance: SPIRONOLACTONE
     Indication: RENAL IMPAIRMENT
     Dosage: 25 MG, BID
     Route: 048
     Dates: start: 20130820, end: 20130827
  32. PROBENECID (WATSON LABORATORIES) [Suspect]
     Active Substance: PROBENECID
     Indication: RENAL IMPAIRMENT
     Dosage: 750 MG, BID
     Route: 048
     Dates: start: 20130826, end: 20130826
  33. PREDNISOLONE (UNKNOWN) [Suspect]
     Active Substance: PREDNISOLONE
     Indication: CAPILLARY LEAK SYNDROME
     Dosage: 30 MG, BID
     Route: 065
     Dates: start: 20130820, end: 20130829
  34. TEICOPLANIN [Suspect]
     Active Substance: TEICOPLANIN
     Dosage: UNKNOWN
     Route: 051
     Dates: start: 20130717, end: 20130719
  35. FLURBIPROFEN AXETIL [Suspect]
     Active Substance: FLURBIPROFEN AXETIL
     Dosage: UNKNOWN
     Route: 051
     Dates: start: 20130723, end: 20130724
  36. ANTITHROMBIN III HUMAN [Suspect]
     Active Substance: ANTITHROMBIN III HUMAN
     Dosage: 1500 IU, DAILY
     Route: 065
     Dates: start: 20130731, end: 20130803
  37. MENATETRENONE [Suspect]
     Active Substance: MENATETRENONE
     Dosage: 10 MG, DAILY
     Route: 065
     Dates: start: 20130720, end: 20130720
  38. POTASSIUM CANRENOATE [Suspect]
     Active Substance: CANRENOATE POTASSIUM
     Indication: RENAL IMPAIRMENT
     Dosage: 100 MG, DAILY
     Route: 051
     Dates: start: 20130820, end: 20130821
  39. HUMAN SERUM ALBUMIN [Suspect]
     Active Substance: ALBUMIN HUMAN
     Indication: CAPILLARY LEAK SYNDROME
     Dosage: UNKNOWN
     Route: 051
     Dates: start: 20130717, end: 20130821
  40. LACTOBACILLUS NOS [Suspect]
     Active Substance: LACTOBACILLUS ACIDOPHILUS
     Indication: THROMBOTIC MICROANGIOPATHY
     Dosage: 1 G, TID
     Route: 048
     Dates: start: 20130820, end: 20130926
  41. MEROPENEM (UNKNOWN) [Suspect]
     Active Substance: MEROPENEM
     Indication: SEPSIS
     Dosage: 1 G, TID
     Route: 016
     Dates: start: 20130715, end: 20130728
  42. NICARDIPINE (UNKNOWN) [Suspect]
     Active Substance: NICARDIPINE
     Indication: HYPERTENSION
     Dosage: UNKNOWN
     Route: 065
     Dates: start: 20130803, end: 20130913
  43. LIDOCAINE (UNKNOWN) [Suspect]
     Active Substance: LIDOCAINE
     Dosage: 400 MG, DAILY
     Route: 065
     Dates: start: 20130714, end: 20130729
  44. HYDROXYZINE (WATSON LABORATORIES) [Suspect]
     Active Substance: HYDROXYZINE HYDROCHLORIDE
     Dosage: UNKNOWN
     Route: 065
     Dates: start: 20130808, end: 20130808
  45. ROCURONIUM [Suspect]
     Active Substance: ROCURONIUM BROMIDE
     Indication: ACUTE LYMPHOCYTIC LEUKAEMIA
     Dosage: 50 MG, SINGLE
     Route: 051
     Dates: start: 20130801, end: 20130801
  46. TEICOPLANIN [Suspect]
     Active Substance: TEICOPLANIN
     Indication: SEPSIS
     Dosage: UNKNOWN
     Route: 051
     Dates: start: 20130722, end: 20130723
  47. ANTITHROMBIN III HUMAN [Suspect]
     Active Substance: ANTITHROMBIN III HUMAN
     Dosage: 1500 IU, DAILY
     Route: 065
     Dates: start: 20130805, end: 20130805
  48. ANTITHROMBIN III HUMAN [Suspect]
     Active Substance: ANTITHROMBIN III HUMAN
     Dosage: 1500 IU, DAILY
     Route: 065
     Dates: start: 20130724, end: 20130724
  49. DEXMEDETOMIDINE HYDROCHLORIDE. [Suspect]
     Active Substance: DEXMEDETOMIDINE HYDROCHLORIDE
     Dosage: UNKNOWN
     Route: 048
     Dates: start: 20130731, end: 20130801
  50. IMMUNOGLOBULIN                     /00025201/ [Suspect]
     Active Substance: HUMAN IMMUNOGLOBULIN G
     Dosage: 5 G, SINGLE
     Route: 051
     Dates: start: 20130718, end: 20130718
  51. PANTHENOL [Suspect]
     Active Substance: PANTHENOL
     Indication: ILEUS PARALYTIC
     Dosage: 1000 MG, DAILY
     Route: 051
     Dates: start: 20130802, end: 20130906
  52. AMLODIPINE BESYLATE. [Suspect]
     Active Substance: AMLODIPINE BESYLATE
     Dosage: 10 MG, DAILY
     Route: 048
     Dates: start: 20130714, end: 20130717
  53. ONDANSETRON HYDROCHLORIDE (UNKNOWN) [Suspect]
     Active Substance: ONDANSETRON HYDROCHLORIDE
     Indication: PROPHYLAXIS
     Dosage: UNKNOWN
     Route: 016
     Dates: start: 20130720, end: 20130721
  54. ONDANSETRON HYDROCHLORIDE (UNKNOWN) [Suspect]
     Active Substance: ONDANSETRON HYDROCHLORIDE
     Dosage: UNKNOWN
     Route: 016
     Dates: start: 20130716, end: 20130716
  55. CHLORPHENIRAMINE MALEATE (WATSON LABORATORIES) [Suspect]
     Active Substance: CHLORPHENIRAMINE MALEATE
     Dosage: UNKNOWN
     Route: 065
     Dates: start: 20130814, end: 20130814
  56. LIDOCAINE (UNKNOWN) [Suspect]
     Active Substance: LIDOCAINE
     Indication: NEUROPATHY PERIPHERAL
     Dosage: 400 MG, DAILY
     Route: 065
     Dates: start: 20130731, end: 20130819
  57. HYDROXYZINE (WATSON LABORATORIES) [Suspect]
     Active Substance: HYDROXYZINE HYDROCHLORIDE
     Indication: ACUTE LYMPHOCYTIC LEUKAEMIA
     Dosage: UNKNOWN
     Route: 065
     Dates: start: 20130826, end: 20130830
  58. HYDROXYZINE (WATSON LABORATORIES) [Suspect]
     Active Substance: HYDROXYZINE HYDROCHLORIDE
     Dosage: UNKNOWN
     Route: 065
     Dates: start: 20130818, end: 20130818
  59. SPIRONOLACTONE (UNKNOWN) [Suspect]
     Active Substance: SPIRONOLACTONE
     Dosage: 40 MG, BID
     Route: 048
     Dates: start: 20130728, end: 20130909
  60. LORMETAZEPAM (UNKNOWN) [Suspect]
     Active Substance: LORMETAZEPAM
     Indication: INSOMNIA
     Dosage: UNKNOWN
     Route: 048
     Dates: start: 20130717, end: 20130718
  61. AMITRIPTYLINE [Suspect]
     Active Substance: AMITRIPTYLINE
     Dosage: 20 MG, DAILY
     Route: 048
     Dates: start: 20130714, end: 20130725
  62. TACROLIMUS. [Suspect]
     Active Substance: TACROLIMUS
     Indication: PROPHYLAXIS
     Dosage: UNKNOWN
     Route: 065
     Dates: start: 20130714, end: 20130924
  63. THROMBOMODULIN ALFA [Suspect]
     Active Substance: THROMBOMODULIN ALFA
     Indication: ABNORMAL CLOTTING FACTOR
     Dosage: 12800 IU, DAILY
     Route: 051
     Dates: start: 20130730, end: 20130804
  64. ANTITHROMBIN III HUMAN [Suspect]
     Active Substance: ANTITHROMBIN III HUMAN
     Dosage: 1500 IU, DAILY
     Route: 065
     Dates: start: 20130726, end: 20130726
  65. DEXMEDETOMIDINE HYDROCHLORIDE. [Suspect]
     Active Substance: DEXMEDETOMIDINE HYDROCHLORIDE
     Dosage: UNKNOWN
     Route: 048
     Dates: start: 20130805, end: 20130808
  66. INSULIN HUMAN [Suspect]
     Active Substance: INSULIN HUMAN
     Indication: HYPERGLYCAEMIA
     Dosage: UNKNOWN
     Route: 051
     Dates: start: 20130730, end: 20130913
  67. METHOTREXATE (METHOTREXATE SODIUM) [Suspect]
     Active Substance: METHOTREXATE SODIUM
     Indication: PROPHYLAXIS
     Dosage: 10 MG, SINGLE
     Route: 048
     Dates: start: 20130716, end: 20130716
  68. AMLODIPINE BESYLATE. [Suspect]
     Active Substance: AMLODIPINE BESYLATE
     Dosage: 2.5 MG, BID
     Route: 048
     Dates: start: 20130802, end: 20130803
  69. AMLODIPINE BESYLATE. [Suspect]
     Active Substance: AMLODIPINE BESYLATE
     Dosage: 2.5 MG, DAILY
     Route: 048
     Dates: start: 20130731, end: 20130801
  70. MIDAZOLAM [Suspect]
     Active Substance: MIDAZOLAM\MIDAZOLAM HYDROCHLORIDE
     Indication: ACUTE LYMPHOCYTIC LEUKAEMIA
     Dosage: UNKNOWN
     Route: 051
     Dates: start: 20130820, end: 20130823
  71. FUROSEMIDE (UNKNOWN) [Suspect]
     Active Substance: FUROSEMIDE
     Dosage: UNKNOWN
     Route: 048
     Dates: start: 20130802, end: 20130803
  72. PREGABALIN (WATSON LABORATORIES) [Suspect]
     Active Substance: PREGABALIN
     Indication: NEUROPATHY PERIPHERAL
     Dosage: 150 MG, BID
     Route: 048
     Dates: start: 20130714, end: 20130729
  73. HYDROXYZINE (WATSON LABORATORIES) [Suspect]
     Active Substance: HYDROXYZINE HYDROCHLORIDE
     Dosage: UNKNOWN
     Route: 065
     Dates: start: 20130813, end: 20130813
  74. PREDNISOLONE (UNKNOWN) [Suspect]
     Active Substance: PREDNISOLONE
     Dosage: 60 MG, DAILY
     Route: 065
     Dates: start: 20130814, end: 20130819
  75. METHYLPREDNISOLONE (WATSON LABORATORIES) [Suspect]
     Active Substance: METHYLPREDNISOLONE
     Indication: CAPILLARY LEAK SYNDROME
     Dosage: 45 MG, DAILY
     Route: 051
     Dates: start: 20130801, end: 20130813
  76. DENOSINE                           /00784201/ [Suspect]
     Active Substance: GANCICLOVIR
     Dosage: 240 MG, BID
     Route: 051
     Dates: end: 20130819
  77. DORIPENEM [Suspect]
     Active Substance: DORIPENEM
     Indication: SEPSIS
     Dosage: 3 G, DAILY
     Route: 042
     Dates: start: 20130728, end: 20130830
  78. LENOGRASTIM [Suspect]
     Active Substance: LENOGRASTIM
     Dosage: 250 MCG, DAILY
     Route: 051
     Dates: start: 20130715, end: 20130803
  79. FLURBIPROFEN AXETIL [Suspect]
     Active Substance: FLURBIPROFEN AXETIL
     Dosage: UNKNOWN
     Route: 051
     Dates: start: 20130726, end: 20130729
  80. ANTITHROMBIN III HUMAN [Suspect]
     Active Substance: ANTITHROMBIN III HUMAN
     Dosage: 1500 IU, DAILY
     Route: 065
     Dates: start: 20130728, end: 20130729
  81. ANTITHROMBIN III HUMAN [Suspect]
     Active Substance: ANTITHROMBIN III HUMAN
     Dosage: 1500 IU, DAILY
     Route: 065
     Dates: start: 20130719, end: 20130721
  82. CARPERITIDE [Suspect]
     Active Substance: CARPERITIDE
     Indication: HYPERTENSION
     Dosage: UNKNOWN
     Route: 051
     Dates: start: 20130818, end: 20130916
  83. IMMUNOGLOBULIN                     /00025201/ [Suspect]
     Active Substance: HUMAN IMMUNOGLOBULIN G
     Dosage: 5 G, SINGLE
     Route: 051
     Dates: start: 20130725, end: 20130725
  84. TOLVAPTAN [Suspect]
     Active Substance: TOLVAPTAN
     Indication: RENAL IMPAIRMENT
     Dosage: 7.5 MG, DAILY
     Route: 048
     Dates: start: 20130820, end: 20130905
  85. DALTEPARIN SODIUM [Suspect]
     Active Substance: DALTEPARIN SODIUM
     Indication: PROPHYLAXIS
     Dosage: 4500 IU, DAILY
     Route: 016
  86. AMLODIPINE BESYLATE. [Suspect]
     Active Substance: AMLODIPINE BESYLATE
     Indication: HYPERTENSION
     Dosage: 5 MG, TID
     Route: 048
     Dates: start: 20130806, end: 20130810
  87. METOCLOPRAMIDE (UNKNOWN) [Suspect]
     Active Substance: METOCLOPRAMIDE
     Indication: ILEUS PARALYTIC
     Dosage: 10 MG, DAILY
     Route: 048
     Dates: start: 20130808, end: 20130809
  88. CALCIUM GLUCONATE (UNKNOWN) [Suspect]
     Active Substance: CALCIUM GLUCONATE
     Indication: HYPOCALCAEMIA
     Dosage: UNKNOWN
     Route: 065
     Dates: start: 20130714, end: 20130716
  89. CHLORPHENIRAMINE MALEATE (WATSON LABORATORIES) [Suspect]
     Active Substance: CHLORPHENIRAMINE MALEATE
     Indication: ACUTE LYMPHOCYTIC LEUKAEMIA
     Dosage: UNKNOWN
     Route: 065
     Dates: start: 20130827, end: 20130827
  90. PIPERACILLIN AND TAZOBACTAM [Suspect]
     Active Substance: PIPERACILLIN SODIUM\TAZOBACTAM SODIUM
     Indication: SEPSIS
     Dosage: 4.5 MG, TID
     Route: 051
     Dates: start: 20130714, end: 20130715
  91. CARBOCISTEINE (UNKNOWN) [Suspect]
     Active Substance: CARBOCYSTEINE
     Indication: PNEUMONIA
     Dosage: 250 MG, TID
     Route: 048
     Dates: start: 20130714, end: 20130729
  92. AMITRIPTYLINE [Suspect]
     Active Substance: AMITRIPTYLINE
     Indication: NEUROPATHY PERIPHERAL
     Dosage: 10 MG, DAILY
     Route: 048
     Dates: start: 20130726, end: 20130729
  93. URSO [Suspect]
     Active Substance: URSODIOL
     Indication: PROPHYLAXIS
     Dosage: 150 MG, TID
     Route: 048
     Dates: start: 20130718, end: 20130926
  94. DENOSINE                           /00784201/ [Suspect]
     Active Substance: GANCICLOVIR
     Indication: CYTOMEGALOVIRUS VIRAEMIA
     Dosage: 250 MG, DAILY
     Route: 051
     Dates: start: 20130826, end: 20130904
  95. DENOSINE                           /00784201/ [Suspect]
     Active Substance: GANCICLOVIR
     Dosage: 250 MG, DAILY
     Route: 051
     Dates: start: 20130821, end: 20130824
  96. DENOSINE                           /00784201/ [Suspect]
     Active Substance: GANCICLOVIR
     Dosage: 250 MG, BID
     Route: 051
     Dates: start: 20130820, end: 20130820
  97. MICAFUNGIN SODIUM [Suspect]
     Active Substance: MICAFUNGIN SODIUM
     Indication: SEPSIS
     Dosage: 200 MG, DAILY
     Route: 051
     Dates: start: 20130825, end: 20130828
  98. MICAFUNGIN SODIUM [Suspect]
     Active Substance: MICAFUNGIN SODIUM
     Dosage: 200 MG, DAILY
     Route: 051
     Dates: start: 20130730, end: 20130821
  99. FLURBIPROFEN AXETIL [Suspect]
     Active Substance: FLURBIPROFEN AXETIL
     Indication: ACUTE LYMPHOCYTIC LEUKAEMIA
     Dosage: UNKNOWN
     Route: 051
     Dates: start: 20130824, end: 20130824
  100. FLURBIPROFEN AXETIL [Suspect]
     Active Substance: FLURBIPROFEN AXETIL
     Dosage: UNKNOWN
     Route: 051
     Dates: start: 20130818, end: 20130818
  101. THROMBOMODULIN ALFA [Suspect]
     Active Substance: THROMBOMODULIN ALFA
     Dosage: 16640 IU, DAILY
     Route: 051
     Dates: start: 20130716, end: 20130729
  102. DEXMEDETOMIDINE HYDROCHLORIDE. [Suspect]
     Active Substance: DEXMEDETOMIDINE HYDROCHLORIDE
     Indication: ACUTE LYMPHOCYTIC LEUKAEMIA
     Dosage: UNKNOWN
     Route: 048
     Dates: start: 20130823, end: 20130823
  103. HUMAN SERUM ALBUMIN [Suspect]
     Active Substance: ALBUMIN HUMAN
     Dosage: UNKNOWN
     Route: 051
     Dates: start: 20130714, end: 20130715
  104. AMLODIPINE BESYLATE. [Suspect]
     Active Substance: AMLODIPINE BESYLATE
     Dosage: 5 MG, BID
     Route: 048
     Dates: start: 20130804, end: 20130805
  105. NICARDIPINE (UNKNOWN) [Suspect]
     Active Substance: NICARDIPINE
     Dosage: UNKNOWN
     Route: 065
     Dates: start: 20130714, end: 20130719
  106. CHLORPHENIRAMINE MALEATE (WATSON LABORATORIES) [Suspect]
     Active Substance: CHLORPHENIRAMINE MALEATE
     Dosage: UNKNOWN
     Route: 065
     Dates: start: 20130810, end: 20130811
  107. FENTANYL CITRATE (WATSON LABORATORIES) [Suspect]
     Active Substance: FENTANYL CITRATE
     Indication: ACUTE LYMPHOCYTIC LEUKAEMIA
     Dosage: UNKNOWN
     Route: 065
     Dates: start: 20130730, end: 20130823
  108. LINTON /00027401/ [Suspect]
     Active Substance: HALOPERIDOL
     Indication: ACUTE LYMPHOCYTIC LEUKAEMIA
     Dosage: 5 MG, DAILY
     Route: 048
     Dates: end: 20130808
  109. LENOGRASTIM [Suspect]
     Active Substance: LENOGRASTIM
     Indication: PROPHYLAXIS
     Dosage: 60 MCG, DAILY
     Route: 051
     Dates: start: 20130806, end: 20130808
  110. FLURBIPROFEN AXETIL [Suspect]
     Active Substance: FLURBIPROFEN AXETIL
     Dosage: UNKNOWN
     Route: 051
     Dates: start: 20130808, end: 20130808
  111. FLURBIPROFEN AXETIL [Suspect]
     Active Substance: FLURBIPROFEN AXETIL
     Dosage: UNKNOWN
     Route: 051
     Dates: start: 20130716, end: 20130717
  112. DROPERIDOL. [Suspect]
     Active Substance: DROPERIDOL
     Indication: ACUTE LYMPHOCYTIC LEUKAEMIA
     Dosage: 1 MG, SINGLE
     Route: 051
     Dates: start: 20130808, end: 20130808

REACTIONS (10)
  - Cytomegalovirus test positive [Not Recovered/Not Resolved]
  - Adenovirus infection [Recovering/Resolving]
  - Respiratory disorder [Recovering/Resolving]
  - Pneumothorax [Recovered/Resolved]
  - Hepatic function abnormal [Recovered/Resolved]
  - Ileus paralytic [Recovered/Resolved]
  - Hyperglycaemia [Not Recovered/Not Resolved]
  - Graft versus host disease [Recovering/Resolving]
  - Diarrhoea [Recovering/Resolving]
  - Thrombotic microangiopathy [Not Recovered/Not Resolved]

NARRATIVE: CASE EVENT DATE: 20130729
